FAERS Safety Report 7027161-2 (Version None)
Quarter: 2010Q4

REPORT INFORMATION
  Report Type: 
  Country: None (occurrence: None)
  Receive Date: 20101001
  Receipt Date: 20101001
  Transmission Date: 20110411
  Serious: Yes (Life-Threatening, Hospitalization)
  Sender: FDA-Public Use
  Company Number: None

PATIENT
  Age: 38 Year
  Sex: Female
  Weight: 51 kg

DRUGS (15)
  1. DENOSUMAB (PROLIA) 60 MG AMGEN [Suspect]
     Indication: OSTEOPOROSIS
     Dosage: 60 MG ONCE 057
     Dates: start: 20100907
  2. TACROLIMUS [Concomitant]
  3. HYDROCORTISONE [Concomitant]
  4. BACTRIM [Concomitant]
  5. CALCIUM CITRATE + VITAMIN D [Concomitant]
  6. MULTIVITAMIN (CENTRUM) [Concomitant]
  7. HYDROMORPHONE HCL [Concomitant]
  8. NYSTATIN SOLUTION [Concomitant]
  9. VALGANCICLOVIR HCL [Concomitant]
  10. VITAMIN B6 [Concomitant]
  11. VITAMIN D [Concomitant]
  12. RANITIDINE [Concomitant]
  13. ZINC SULFATE [Concomitant]
  14. LOPERAMIDE [Concomitant]
  15. ESZOPICLONE [Concomitant]

REACTIONS (1)
  - HYPOCALCAEMIA [None]
